FAERS Safety Report 20775608 (Version 1)
Quarter: 2022Q2

REPORT INFORMATION
  Report Type: Other
  Country: MX (occurrence: None)
  Receive Date: 20220502
  Receipt Date: 20220502
  Transmission Date: 20220721
  Serious: Yes (Other)
  Sender: FDA-Public Use
  Company Number: MX-ROCHE-3086268

PATIENT
  Sex: Female

DRUGS (1)
  1. OCREVUS [Suspect]
     Active Substance: OCRELIZUMAB
     Indication: Multiple sclerosis
     Dosage: OCRELIZUMAB VIAL OF 300MG/10ML (30MG/ML)
     Route: 042
     Dates: start: 20200721

REACTIONS (2)
  - Demyelination [Not Recovered/Not Resolved]
  - Central nervous system lesion [Not Recovered/Not Resolved]
